FAERS Safety Report 10381838 (Version 1)
Quarter: 2014Q3

REPORT INFORMATION
  Report Type: Spontaneous
  Country: ES (occurrence: None)
  Receive Date: 20140811
  Receipt Date: 20140811
  Transmission Date: 20150326
  Serious: Yes (Other)
  Sender: FDA-Public Use
  Company Number: 2014ES006720

PATIENT
  Age: 85 Year
  Sex: Male

DRUGS (1)
  1. ELIGARD [Suspect]
     Active Substance: LEUPROLIDE ACETATE
     Indication: PROSTATIC ADENOMA
     Dosage: BIANUALLY
     Route: 058
     Dates: start: 201110

REACTIONS (3)
  - Injection site abscess [None]
  - Off label use [None]
  - Diarrhoea [None]

NARRATIVE: CASE EVENT DATE: 201110
